FAERS Safety Report 17536540 (Version 1)
Quarter: 2020Q1

REPORT INFORMATION
  Report Type: Spontaneous
  Country: CN (occurrence: CN)
  Receive Date: 20200313
  Receipt Date: 20200313
  Transmission Date: 20200409
  Serious: Yes (Hospitalization)
  Sender: FDA-Public Use
  Company Number: CN-ROCHE-2565888

PATIENT
  Age: 50 Year
  Sex: Female
  Weight: 70 kg

DRUGS (5)
  1. HERCEPTIN [Suspect]
     Active Substance: TRASTUZUMAB
     Indication: BREAST CANCER
     Dosage: INJECTION 440 MG
     Route: 041
     Dates: start: 20200207, end: 20200207
  2. GLUCOSE [Concomitant]
     Active Substance: DEXTROSE
     Dosage: 12.5 G/250 ML
     Route: 041
     Dates: start: 20200207, end: 20200207
  3. DOCETAXEL. [Concomitant]
     Active Substance: DOCETAXEL
     Indication: BREAST CANCER
     Dosage: 20 MG/0.5 ML
     Route: 041
     Dates: start: 20200207, end: 20200207
  4. PERJETA [Suspect]
     Active Substance: PERTUZUMAB
     Indication: BREAST CANCER
     Dosage: 420 MG/ 14 ML
     Route: 041
     Dates: start: 20200207, end: 20200207
  5. SODIUM CHLORIDE. [Concomitant]
     Active Substance: SODIUM CHLORIDE
     Dosage: 2.25 G/250 ML
     Route: 041
     Dates: start: 20200207, end: 20200207

REACTIONS (3)
  - Rash [Recovering/Resolving]
  - Pruritus [Recovering/Resolving]
  - Papule [Unknown]

NARRATIVE: CASE EVENT DATE: 20200226
